FAERS Safety Report 7413236-2 (Version None)
Quarter: 2011Q2

REPORT INFORMATION
  Report Type: 
  Country: None (occurrence: None)
  Receive Date: 20110405
  Receipt Date: 20110329
  Transmission Date: 20111010
  Serious: Yes (Death)
  Sender: FDA-Public Use
  Company Number: 2011030141

PATIENT
  Age: 62 Year
  Sex: Female

DRUGS (8)
  1. ONSOLIS [Suspect]
     Indication: BREAKTHROUGH PAIN
     Dosage: TO BE TITRATED UP TO 4-200 MCG FILMS (UP TO 4 TIMES DAILY), BU
     Route: 002
     Dates: start: 20100701, end: 20100101
  2. METHADONE (METHADONE) [Concomitant]
  3. LISINOPRIL (LISISNOPRIL) [Concomitant]
  4. LYRICA [Concomitant]
  5. ATIVAN [Concomitant]
  6. MS CONTIN [Concomitant]
  7. AMITRIPTYLINE (AMITRIPTYLINE) [Concomitant]
  8. OXYCODONE (OXYCODONE) [Concomitant]

REACTIONS (1)
  - DRUG INEFFECTIVE [None]
